FAERS Safety Report 11746969 (Version 1)
Quarter: 2015Q4

REPORT INFORMATION
  Report Type: Spontaneous
  Country: US (occurrence: US)
  Receive Date: 20151117
  Receipt Date: 20151117
  Transmission Date: 20160304
  Serious: No
  Sender: FDA-Public Use
  Company Number: US-LPDUSPRD-20140830

PATIENT
  Age: 48 Year
  Sex: Female

DRUGS (1)
  1. CALCITRIOL INJECTION, USP (0132-25) [Suspect]
     Active Substance: CALCITRIOL
     Route: 065

REACTIONS (1)
  - Drug hypersensitivity [Unknown]
